FAERS Safety Report 4440403-2 (Version None)
Quarter: 2004Q3

REPORT INFORMATION
  Report Type: 
  Country: None (occurrence: None)
  Receive Date: 20040728
  Receipt Date: 20040308
  Transmission Date: 20050211
  Serious: No
  Sender: FDA-Public Use
  Company Number: USA040361321

PATIENT
  Age: 15 Year
  Sex: Female
  Weight: 48 kg

DRUGS (3)
  1. STRATTERA [Suspect]
     Indication: ATTENTION DEFICIT/HYPERACTIVITY DISORDER
     Dosage: 60 MG DAY
     Dates: start: 20040210
  2. TRAZODONE [Concomitant]
  3. CEPHADROXIL (CEFADROXIL) [Concomitant]

REACTIONS (4)
  - FATIGUE [None]
  - MIGRAINE [None]
  - SOMNOLENCE [None]
  - WEIGHT DECREASED [None]
